FAERS Safety Report 8586225-2 (Version None)
Quarter: 2012Q3

REPORT INFORMATION
  Report Type: 
  Country: None (occurrence: None)
  Receive Date: 20120810
  Receipt Date: 20120727
  Transmission Date: 20120928
  Serious: No
  Sender: FDA-Public Use
  Company Number: US-BAYER-2012-076731

PATIENT
  Sex: Female

DRUGS (1)
  1. CLIMARA [Suspect]
     Dosage: 0.025 MG, UNK

REACTIONS (4)
  - MENOPAUSAL SYMPTOMS [None]
  - DEPRESSION [None]
  - HOT FLUSH [None]
  - FLUSHING [None]
